FAERS Safety Report 24079074 (Version 1)
Quarter: 2024Q3

REPORT INFORMATION
  Report Type: Spontaneous
  Country: US (occurrence: None)
  Receive Date: 20240710
  Receipt Date: 20240710
  Transmission Date: 20241016
  Serious: No
  Sender: Public
  Company Number: None

PATIENT
  Sex: Male

DRUGS (3)
  1. ILARIS [Suspect]
     Active Substance: CANAKINUMAB
     Indication: Rheumatoid arthritis
     Dosage: 300MG EVERY 4 WEEKS SQ
     Route: 058
     Dates: start: 202406
  2. COSENTYX [Concomitant]
     Active Substance: SECUKINUMAB
  3. TYMILDS [Concomitant]

REACTIONS (1)
  - Peripheral swelling [None]
